FAERS Safety Report 14616838 (Version 1)
Quarter: 2018Q1

REPORT INFORMATION
  Report Type: Spontaneous
  Country: US (occurrence: US)
  Receive Date: 20180309
  Receipt Date: 20180309
  Transmission Date: 20180509
  Serious: Yes (Hospitalization)
  Sender: FDA-Public Use
  Company Number: US-BIOGEN-2016BI00208320

PATIENT
  Age: 48 Year
  Sex: Female
  Weight: 65.83 kg

DRUGS (3)
  1. TECFIDERA [Suspect]
     Active Substance: DIMETHYL FUMARATE
     Dosage: X 1 DOSE
     Route: 048
     Dates: start: 20160328, end: 20160328
  2. TECFIDERA [Suspect]
     Active Substance: DIMETHYL FUMARATE
     Indication: MULTIPLE SCLEROSIS
     Dosage: STARTING DOSE
     Route: 048
     Dates: start: 20160309, end: 20160314
  3. TECFIDERA [Suspect]
     Active Substance: DIMETHYL FUMARATE
     Dosage: X 1 DOSE
     Route: 048
     Dates: start: 20160331, end: 20170301

REACTIONS (3)
  - Anaphylactic reaction [Recovered/Resolved]
  - Abdominal pain [Unknown]
  - Memory impairment [Unknown]

NARRATIVE: CASE EVENT DATE: 20160309
